FAERS Safety Report 16739223 (Version 1)
Quarter: 2019Q3

REPORT INFORMATION
  Report Type: Spontaneous
  Country: US (occurrence: US)
  Receive Date: 20190826
  Receipt Date: 20190826
  Transmission Date: 20191005
  Serious: No
  Sender: FDA-Public Use
  Company Number: US-OREXO US, INC.-ORE201901-000003

PATIENT

DRUGS (2)
  1. SUBOXONE [Suspect]
     Active Substance: BUPRENORPHINE HYDROCHLORIDE\NALOXONE HYDROCHLORIDE
  2. ZUBSOLV [Suspect]
     Active Substance: BUPRENORPHINE HYDROCHLORIDE\NALOXONE HYDROCHLORIDE

REACTIONS (12)
  - Wrong technique in product usage process [Unknown]
  - Malaise [Unknown]
  - Nervousness [Unknown]
  - Nasopharyngitis [Unknown]
  - Hyperhidrosis [Unknown]
  - Migraine [Unknown]
  - Nausea [Unknown]
  - Asthenia [Unknown]
  - Adverse event [Unknown]
  - Rhinorrhoea [Unknown]
  - Personality change [Unknown]
  - Abdominal pain [Unknown]
